FAERS Safety Report 5575757-7 (Version None)
Quarter: 2007Q4

REPORT INFORMATION
  Report Type: 
  Country: None (occurrence: None)
  Receive Date: 20071221
  Receipt Date: 20071206
  Transmission Date: 20080405
  Serious: Yes (Death)
  Sender: FDA-Public Use
  Company Number: S07-GRC-06255-01

PATIENT
  Age: 63 Year
  Sex: Female

DRUGS (9)
  1. ESCITALOPRAM [Suspect]
     Indication: DEPRESSION
     Dosage: 10 MG QD PO
     Route: 048
     Dates: start: 20070830, end: 20070905
  2. AMISULPRIDE [Concomitant]
  3. DIGOXIN [Concomitant]
  4. ACETYLSALICYLIC ACID SRT [Concomitant]
  5. CLOPIDOGREL [Concomitant]
  6. METOPROLOL TARTRATE [Concomitant]
  7. RAMIPRIL/HYDROCHLOROTHIAZIDE [Concomitant]
  8. ALBUTEROL [Concomitant]
  9. IPRATROPIUM BROMIDE [Concomitant]

REACTIONS (1)
  - MYOCARDIAL INFARCTION [None]
